FAERS Safety Report 6466924-9 (Version None)
Quarter: 2009Q4

REPORT INFORMATION
  Report Type: 
  Country: None (occurrence: None)
  Receive Date: 20091202
  Receipt Date: 20091123
  Transmission Date: 20100525
  Serious: Yes (Hospitalization)
  Sender: FDA-Public Use
  Company Number: GB-PFIZER INC-2009301875

PATIENT
  Age: 69 Year
  Sex: Male
  Weight: 80 kg

DRUGS (2)
  1. IRINOTECAN HCL [Suspect]
     Indication: COLORECTAL CANCER
     Dosage: 700 MG, UNK
     Route: 042
     Dates: start: 20090309
  2. PANITUMUMAB [Suspect]
     Indication: COLORECTAL CANCER
     Dosage: 700 MG, UNK
     Route: 042
     Dates: start: 20090309

REACTIONS (1)
  - ATRIAL FIBRILLATION [None]
